FAERS Safety Report 15401026 (Version 1)
Quarter: 2018Q3

REPORT INFORMATION
  Report Type: Spontaneous
  Country: US (occurrence: US)
  Receive Date: 20180914
  Receipt Date: 20180914
  Transmission Date: 20181010
  Serious: Yes (Life-Threatening, Disabling, Other)
  Sender: FDA-Public Use
  Company Number: None

PATIENT
  Age: 51 Year
  Sex: Male
  Weight: 108 kg

DRUGS (1)
  1. SERTALINE HCL 100 MG [Suspect]
     Active Substance: SERTRALINE HYDROCHLORIDE
     Indication: DEPRESSION
     Route: 048
     Dates: start: 20180509, end: 20180604

REACTIONS (7)
  - Product substitution issue [None]
  - Disorientation [None]
  - Depression [None]
  - Tooth loss [None]
  - Seizure [None]
  - Suicidal ideation [None]
  - Weight decreased [None]

NARRATIVE: CASE EVENT DATE: 20180505
